FAERS Safety Report 14936955 (Version 2)
Quarter: 2018Q4

REPORT INFORMATION
  Report Type: Report from Study
  Country: US (occurrence: US)
  Receive Date: 20180525
  Receipt Date: 20181212
  Transmission Date: 20190204
  Serious: No
  Sender: FDA-Public Use
  Company Number: PHEH2018US019564

PATIENT
  Sex: Male

DRUGS (1)
  1. ENTRESTO [Suspect]
     Active Substance: SACUBITRIL\VALSARTAN
     Indication: CARDIAC FAILURE CONGESTIVE
     Dosage: 1 DF, BID (24 MG SACUBITRIL AND 26 MG VALSARTAN)
     Route: 048

REACTIONS (4)
  - Abdominal discomfort [Unknown]
  - Asthenia [Unknown]
  - Hypotension [Recovering/Resolving]
  - Back pain [Unknown]
